FAERS Safety Report 7973725-9 (Version None)
Quarter: 2011Q4

REPORT INFORMATION
  Report Type: 
  Country: None (occurrence: None)
  Receive Date: 20111213
  Receipt Date: 20111213
  Transmission Date: 20120403
  Serious: Yes (Life-Threatening, Hospitalization)
  Sender: FDA-Public Use
  Company Number: None

PATIENT
  Age: 66 Year
  Sex: Male
  Weight: 108.86 kg

DRUGS (1)
  1. ALFUZOSIN HCL [Suspect]
     Indication: URINE FLOW DECREASED
     Dosage: 1 TABLET 10 MG
     Route: 048
     Dates: start: 20111210, end: 20111211

REACTIONS (5)
  - FALL [None]
  - UNRESPONSIVE TO STIMULI [None]
  - HYPOTENSION [None]
  - HEAD INJURY [None]
  - PRODUCT SUBSTITUTION ISSUE [None]
